FAERS Safety Report 7214421-5 (Version None)
Quarter: 2011Q1

REPORT INFORMATION
  Report Type: 
  Country: None (occurrence: None)
  Receive Date: 20110107
  Receipt Date: 20101230
  Transmission Date: 20110831
  Serious: Yes (Other)
  Sender: FDA-Public Use
  Company Number: PHFR2010IE04919

PATIENT
  Sex: Male

DRUGS (4)
  1. ABILIFY [Suspect]
     Dosage: 15 MG, QD
     Route: 048
  2. CLOZARIL [Suspect]
     Indication: SCHIZOPHRENIA
     Dosage: 100 MG, BID
     Route: 048
     Dates: start: 20050501
  3. PROCYCLIDINE HYDROCHLORIDE 2MG TAB [Concomitant]
  4. EFFEXOR XR [Concomitant]
     Indication: AFFECTIVE DISORDER
     Dosage: 150MG DAILY
     Route: 048

REACTIONS (4)
  - OCULOGYRIC CRISIS [None]
  - MUSCULOSKELETAL STIFFNESS [None]
  - MUSCLE TWITCHING [None]
  - LIP DISORDER [None]
